FAERS Safety Report 7111361-7 (Version None)
Quarter: 2010Q4

REPORT INFORMATION
  Report Type: 
  Country: None (occurrence: None)
  Receive Date: 20101118
  Receipt Date: 20101111
  Transmission Date: 20110411
  Serious: Yes (Hospitalization)
  Sender: FDA-Public Use
  Company Number: PHHO2010DE17133

PATIENT
  Sex: Male

DRUGS (2)
  1. ZOLEDRONIC ACID [Suspect]
  2. CLINDAMYCIN [Concomitant]

REACTIONS (4)
  - JAW OPERATION [None]
  - OSTEONECROSIS [None]
  - OSTEOTOMY [None]
  - SEQUESTRECTOMY [None]
